FAERS Safety Report 13140125 (Version 1)
Quarter: 2017Q1

REPORT INFORMATION
  Report Type: Spontaneous
  Country: US (occurrence: US)
  Receive Date: 20170123
  Receipt Date: 20170123
  Transmission Date: 20170428
  Serious: No
  Sender: FDA-Public Use
  Company Number: US-UNITED THERAPEUTICS-UNT-2016-014748

PATIENT
  Sex: Female

DRUGS (1)
  1. REMODULIN [Suspect]
     Active Substance: TREPROSTINIL
     Indication: PRODUCT USED FOR UNKNOWN INDICATION
     Dosage: 0.0295 ?G/KG, EVERY 48 HOURS
     Route: 041
     Dates: start: 201602

REACTIONS (3)
  - Nausea [Unknown]
  - Alopecia [Unknown]
  - Pain in extremity [Unknown]

NARRATIVE: CASE EVENT DATE: 201602
